FAERS Safety Report 14482504 (Version 1)
Quarter: 2018Q1

REPORT INFORMATION
  Report Type: Spontaneous
  Country: US (occurrence: US)
  Receive Date: 20180202
  Receipt Date: 20180202
  Transmission Date: 20180509
  Serious: Yes (Other)
  Sender: FDA-Public Use
  Company Number: US-ZYDUS-018925

PATIENT
  Age: 46 Year
  Sex: Female

DRUGS (1)
  1. TRAMADOL. [Suspect]
     Active Substance: TRAMADOL
     Indication: PROCEDURAL PAIN
     Route: 065

REACTIONS (5)
  - Dyspnoea [Recovered/Resolved]
  - Stridor [Recovered/Resolved]
  - Respiratory distress [Recovered/Resolved]
  - Vocal cord dysfunction [Recovered/Resolved]
  - Dysphonia [Recovered/Resolved]
